FAERS Safety Report 9831427 (Version 2)
Quarter: 2014Q1

REPORT INFORMATION
  Report Type: Report from Study
  Country: US (occurrence: US)
  Receive Date: 20140121
  Receipt Date: 20140121
  Transmission Date: 20141002
  Serious: Yes (Other)
  Sender: FDA-Public Use
  Company Number: US-ROCHE-1277558

PATIENT
  Age: 60 Year
  Sex: Male

DRUGS (4)
  1. LUCENTIS [Suspect]
     Indication: RETINAL VEIN OCCLUSION
     Dosage: OD; MOST RECENT DOSE ON 06/JAN/2014.
     Route: 050
     Dates: start: 201301
  2. LUCENTIS [Suspect]
     Indication: EYE HAEMORRHAGE
  3. OFLOXACIN [Concomitant]
  4. BABY ASPIRIN [Concomitant]

REACTIONS (6)
  - Myocardial infarction [Recovered/Resolved with Sequelae]
  - Vitreous floaters [Recovered/Resolved]
  - Metamorphopsia [Unknown]
  - Visual impairment [Unknown]
  - Vision blurred [Recovered/Resolved]
  - Visual acuity reduced [Recovered/Resolved]
